FAERS Safety Report 10884379 (Version 1)
Quarter: 2015Q1

REPORT INFORMATION
  Report Type: Spontaneous
  Country: GB (occurrence: None)
  Receive Date: 20150227
  Receipt Date: 20150227
  Transmission Date: 20150721
  Serious: No
  Sender: FDA-Public Use
  Company Number: PR 4736

PATIENT
  Age: 63 Year
  Sex: Female

DRUGS (4)
  1. ZOTON (LANSOPRAZOLE) [Concomitant]
  2. COSOPT [Suspect]
     Active Substance: DORZOLAMIDE HYDROCHLORIDE\TIMOLOL MALEATE
     Indication: OPEN ANGLE GLAUCOMA
     Dates: start: 20130115, end: 20131126
  3. LUMIGAN (BIMATOPROST) [Concomitant]
  4. PYRIDOSTIGMINE BROMIDE. [Concomitant]
     Active Substance: PYRIDOSTIGMINE BROMIDE

REACTIONS (2)
  - Diplopia [None]
  - Malaise [None]
